FAERS Safety Report 5301579-8 (Version None)
Quarter: 2007Q2

REPORT INFORMATION
  Report Type: 
  Country: None (occurrence: None)
  Receive Date: 20070412
  Receipt Date: 20070327
  Transmission Date: 20071010
  Serious: Yes (Other)
  Sender: FDA-Public Use
  Company Number: DSA_29714_2007

PATIENT
  Age: 56 Year
  Sex: Female

DRUGS (23)
  1. TILDIEM [Suspect]
     Indication: HYPERTENSION
     Dosage: 200 MG QD PO
     Route: 048
     Dates: start: 20041201, end: 20050801
  2. SELOKEN ZOC/ASA [Suspect]
     Indication: HYPERTENSION
     Dosage: 100 MG QD PO
     Route: 048
     Dates: start: 20041201, end: 20051201
  3. ZOCOR [Suspect]
     Indication: HYPERCHOLESTEROLAEMIA
     Dosage: 20 MG QD PO
     Route: 048
     Dates: start: 19950101, end: 20060101
  4. HYDROCHLOROTHIAZIDE [Concomitant]
  5. PARACETAMOL [Concomitant]
  6. CRESTOR [Concomitant]
  7. PARIET [Concomitant]
  8. LERDIP [Concomitant]
  9. BISOPROLOL FUMARATE [Concomitant]
  10. OMEPRAZOLE [Concomitant]
  11. PLAVIX [Concomitant]
  12. DIAZEPAM [Concomitant]
  13. PULMICORT [Concomitant]
  14. POLARAMINE /00043702/ [Concomitant]
  15. NITROGLYCERIN [Concomitant]
  16. SIRALUD [Concomitant]
  17. BECONASE [Concomitant]
  18. BEROTEC [Concomitant]
  19. ATROVENT [Concomitant]
  20. HYDROCOBAMINE [Concomitant]
  21. PYRIDOXIN [Concomitant]
  22. ALLERGO-COMOD [Concomitant]
  23. NEXIUM [Concomitant]

REACTIONS (8)
  - ARTHRALGIA [None]
  - DEPRESSION [None]
  - DYSPEPSIA [None]
  - FATIGUE [None]
  - HYPERHIDROSIS [None]
  - MEMORY IMPAIRMENT [None]
  - MYALGIA [None]
  - NAUSEA [None]
